FAERS Safety Report 10854867 (Version 1)
Quarter: 2015Q1

REPORT INFORMATION
  Report Type: Spontaneous
  Country: US (occurrence: None)
  Receive Date: 20150218
  Receipt Date: 20150218
  Transmission Date: 20150721
  Serious: Yes (Hospitalization)
  Sender: FDA-Public Use
  Company Number: None

PATIENT
  Age: 71 Year
  Sex: Male
  Weight: 65.77 kg

DRUGS (7)
  1. CHOLECALCIFEROL (VITAMIN D3) [Concomitant]
  2. CALCIUM CARBONATE ANTACID (TUMS) [Concomitant]
  3. DIPHENHYDRAMINE (BENADRYL) [Concomitant]
  4. LEVOTHYROXINE SODIUM (SYNTHROID) [Concomitant]
  5. ASPIRIN. [Concomitant]
     Active Substance: ASPIRIN
  6. CABOZANTINIB [Suspect]
     Active Substance: CABOZANTINIB
     Indication: THYROID CANCER
     Route: 048
  7. CALCIUM CITRATE-VITAMIN D (CALCIUM CITRATE) [Concomitant]

REACTIONS (1)
  - Epistaxis [None]

NARRATIVE: CASE EVENT DATE: 20150216
